FAERS Safety Report 8728241 (Version 2)
Quarter: 2012Q4

REPORT INFORMATION
  Report Type: 
  Country: US (occurrence: US)
  Receive Date: 20120817
  Receipt Date: 20120920
  Transmission Date: 20130627
  Serious: No
  Sender: FDA-Public Use
  Company Number: US-PFIZER INC-2012199458

PATIENT
  Age: 54 Year
  Sex: Female

DRUGS (3)
  1. XANAX [Suspect]
     Indication: ANXIETY
     Dosage: UNK
  2. LIOTHYRONINE SODIUM [Suspect]
     Indication: THYROID HORMONE REPLACEMENT THERAPY
     Dosage: 5 ug, UNK
  3. SYNTHROID [Suspect]
     Indication: THYROID HORMONE REPLACEMENT THERAPY
     Dosage: UNK

REACTIONS (5)
  - Thyroid function test abnormal [Unknown]
  - Fatigue [Unknown]
  - Tremor [Unknown]
  - Oropharyngeal pain [Unknown]
  - Dysphonia [Unknown]
